FAERS Safety Report 13977501 (Version 1)
Quarter: 2017Q3

REPORT INFORMATION
  Report Type: Spontaneous
  Country: US (occurrence: US)
  Receive Date: 20170915
  Receipt Date: 20170915
  Transmission Date: 20171128
  Serious: Yes (Other)
  Sender: FDA-Public Use
  Company Number: None

PATIENT
  Sex: Male
  Weight: 96.3 kg

DRUGS (8)
  1. METOPROLOL TART [Concomitant]
     Active Substance: METOPROLOL TARTRATE
  2. ASPIRIN. [Concomitant]
     Active Substance: ASPIRIN
  3. CLOPIDOGREL [Concomitant]
     Active Substance: CLOPIDOGREL BISULFATE
  4. SPIRONOLACTONE-HCTZ [Concomitant]
     Active Substance: HYDROCHLOROTHIAZIDE\SPIRONOLACTONE
  5. ALLOPURINOL. [Concomitant]
     Active Substance: ALLOPURINOL
  6. HUMALOG KWIKPEN [Suspect]
     Active Substance: INSULIN LISPRO
     Indication: DIABETES MELLITUS
     Dosage: ?          QUANTITY:7 INJECTION(S);?
     Route: 058
     Dates: start: 20170911, end: 20170915
  7. ONE A DAY MENA MULTIVITAMIN [Concomitant]
  8. LANTUS [Suspect]
     Active Substance: INSULIN GLARGINE
     Indication: DIABETES MELLITUS
     Dosage: ?          QUANTITY:20 INJECTION(S);?
     Route: 058
     Dates: start: 20170911, end: 20170915

REACTIONS (2)
  - Blood glucose increased [None]
  - Product quality issue [None]

NARRATIVE: CASE EVENT DATE: 20170911
